FAERS Safety Report 12673195 (Version 1)
Quarter: 2016Q3

REPORT INFORMATION
  Report Type: Spontaneous
  Country: DE (occurrence: FR)
  Receive Date: 20160822
  Receipt Date: 20160822
  Transmission Date: 20161109
  Serious: Yes (Hospitalization)
  Sender: FDA-Public Use
  Company Number: FR-FRI-1000086899

PATIENT
  Age: 82 Year
  Sex: Female

DRUGS (8)
  1. ACIDE FOLIQUE [Concomitant]
     Active Substance: FOLIC ACID
     Dosage: 10 MG
     Route: 048
  2. ACETYLSALICYLATE DE DL-LYSINE [Concomitant]
     Dosage: 6560 MG
     Route: 048
  3. MIANSERINE [Concomitant]
     Active Substance: MIANSERIN HYDROCHLORIDE
     Dosage: 10 MG
     Route: 048
  4. FENOFIBRATE. [Concomitant]
     Active Substance: FENOFIBRATE
     Dosage: 300 MG
     Route: 048
  5. FLECTOR [Concomitant]
     Active Substance: DICLOFENAC EPOLAMINE
     Route: 003
  6. MEMANTINE. [Suspect]
     Active Substance: MEMANTINE
     Indication: DEMENTIA ALZHEIMER^S TYPE
     Dosage: 20 MG
     Route: 048
     Dates: start: 20150618, end: 20160712
  7. FUROSEMIDE. [Concomitant]
     Active Substance: FUROSEMIDE
     Dosage: 40 MG
     Route: 048
  8. GINKGO EXTRACT\HEPTAMINOL\TROXERUTIN [Concomitant]
     Active Substance: GINKGO\HEPTAMINOL\TROXERUTIN
     Dosage: 1 DF
     Route: 048

REACTIONS (1)
  - Pulmonary embolism [Recovering/Resolving]

NARRATIVE: CASE EVENT DATE: 20160712
